FAERS Safety Report 18907050 (Version 1)
Quarter: 2021Q1

REPORT INFORMATION
  Report Type: Spontaneous
  Country: US (occurrence: US)
  Receive Date: 20210217
  Receipt Date: 20210217
  Transmission Date: 20210420
  Serious: No
  Sender: FDA-Public Use
  Company Number: US-XERIS PHARMACEUTICALS-2021XER00004

PATIENT
  Age: 63 Year
  Sex: Male
  Weight: 86.17 kg

DRUGS (3)
  1. UNSPECIFIED BLOOD PRESSURE MEDICATION [Concomitant]
     Active Substance: UNSPECIFIED INGREDIENT
  2. BIPHASIC INSULIN [Concomitant]
     Dosage: DOSE ADJUSTED DAILY DEPENDING ON PATIENT^S BLOOD SUGAR, HOW THE PATIENT FEELS, AND PATIENT^S ACTIVIT
  3. GVOKE [Suspect]
     Active Substance: GLUCAGON
     Indication: HYPOGLYCAEMIA
     Dosage: 1 MG, ONCE INJECTED ON BACK OF RIGHT ARM
     Dates: start: 20210118

REACTIONS (1)
  - Device delivery system issue [Recovered/Resolved]

NARRATIVE: CASE EVENT DATE: 20210118
